FAERS Safety Report 22121433 (Version 1)
Quarter: 2023Q1

REPORT INFORMATION
  Report Type: Spontaneous
  Country: US (occurrence: None)
  Receive Date: 20230321
  Receipt Date: 20230321
  Transmission Date: 20230417
  Serious: Yes (Other)
  Sender: FDA-Public Use
  Company Number: None

PATIENT
  Age: 59 Year
  Sex: Female
  Weight: 86.18 kg

DRUGS (1)
  1. ARTIFICIAL TEARS LUBRICANT EYE DROPS (CARBOXYMETHYLCELLULOSE SODIUM) [Suspect]
     Active Substance: CARBOXYMETHYLCELLULOSE SODIUM
     Dates: start: 20220320, end: 20220405

REACTIONS (8)
  - Eye irritation [None]
  - Eye pain [None]
  - Eye pruritus [None]
  - Lacrimation increased [None]
  - Foreign body sensation in eyes [None]
  - Photophobia [None]
  - Drug ineffective [None]
  - Eye irritation [None]

NARRATIVE: CASE EVENT DATE: 20220329
